FAERS Safety Report 4983846-0 (Version None)
Quarter: 2006Q2

REPORT INFORMATION
  Report Type: 
  Country: None (occurrence: None)
  Receive Date: 20060426
  Receipt Date: 20050912
  Transmission Date: 20061013
  Serious: Yes (Other)
  Sender: FDA-Public Use
  Company Number: US-MERCK-0510USA07612

PATIENT
  Age: 39 Month
  Sex: Male
  Weight: 17 kg

DRUGS (1)
  1. SINGULAIR [Suspect]
     Indication: BRONCHIAL HYPERACTIVITY
     Route: 048

REACTIONS (3)
  - ASTHMA [None]
  - CONVULSION [None]
  - PNEUMONIA [None]
